FAERS Safety Report 6103252-5 (Version None)
Quarter: 2009Q1

REPORT INFORMATION
  Report Type: 
  Country: None (occurrence: None)
  Receive Date: 20090305
  Receipt Date: 20090224
  Transmission Date: 20090719
  Serious: Yes (Hospitalization)
  Sender: FDA-Public Use
  Company Number: US-RB-010966-09

PATIENT
  Age: 40 Year
  Sex: Female

DRUGS (1)
  1. MUCINEX DM [Suspect]
     Indication: PNEUMONIA
     Route: 048

REACTIONS (3)
  - DIARRHOEA [None]
  - DYSPEPSIA [None]
  - VOMITING [None]
